FAERS Safety Report 11244781 (Version 1)
Quarter: 2015Q3

REPORT INFORMATION
  Report Type: Spontaneous
  Country: US (occurrence: US)
  Receive Date: 20150707
  Receipt Date: 20150707
  Transmission Date: 20151125
  Serious: No
  Sender: FDA-Public Use
  Company Number: US-DSJP-DSU-2015-100981

PATIENT
  Sex: Female

DRUGS (8)
  1. INVOKANA [Concomitant]
     Active Substance: CANAGLIFLOZIN
     Indication: TYPE 2 DIABETES MELLITUS
     Dosage: 1 TABLET, QD
  2. ASPIRIN. [Concomitant]
     Active Substance: ASPIRIN
     Indication: PRODUCT USED FOR UNKNOWN INDICATION
     Dosage: 81 MG, QD
  3. MULTI VITAMIN [Concomitant]
     Active Substance: VITAMINS
     Indication: PRODUCT USED FOR UNKNOWN INDICATION
     Dosage: UNK
  4. WELCHOL [Suspect]
     Active Substance: COLESEVELAM HYDROCHLORIDE
     Indication: TYPE 2 DIABETES MELLITUS
     Dosage: 1875 MG, BID
     Route: 048
     Dates: start: 20150111, end: 20150113
  5. DORZOLAMIDE TIMOLOL [Concomitant]
     Active Substance: DORZOLAMIDE
     Indication: OPEN ANGLE GLAUCOMA
     Dosage: 2 DROPS, BID
     Route: 047
  6. CALCIUM + MAGNESIUM [Concomitant]
     Indication: SUPPLEMENTATION THERAPY
     Dosage: UNK
  7. ATORVASTATIN [Concomitant]
     Active Substance: ATORVASTATIN
     Indication: BLOOD CHOLESTEROL INCREASED
     Dosage: 1 TABLET, QD
  8. GLIPIZIDE. [Concomitant]
     Active Substance: GLIPIZIDE
     Indication: TYPE 2 DIABETES MELLITUS
     Dosage: 1 TABLET, QD

REACTIONS (1)
  - Blood glucose increased [Not Recovered/Not Resolved]

NARRATIVE: CASE EVENT DATE: 201501
